FAERS Safety Report 11623568 (Version 1)
Quarter: 2015Q4

REPORT INFORMATION
  Report Type: Spontaneous
  Country: US (occurrence: US)
  Receive Date: 20151013
  Receipt Date: 20151013
  Transmission Date: 20160304
  Serious: No
  Sender: FDA-Public Use
  Company Number: US-JNJFOC-20141211487

PATIENT
  Age: 76 Year
  Sex: Female
  Weight: 66.68 kg

DRUGS (1)
  1. TYLENOL [Suspect]
     Active Substance: ACETAMINOPHEN
     Indication: MYALGIA
     Dosage: 1-2 CAPLET 3-4 TIMES A DAY (EVERY 8 HOURS) OR AS NEEDED.
     Route: 048

REACTIONS (3)
  - Incorrect dose administered [Unknown]
  - Vomiting [Unknown]
  - Product difficult to swallow [Recovered/Resolved]
